FAERS Safety Report 7745355-5 (Version None)
Quarter: 2011Q3

REPORT INFORMATION
  Report Type: 
  Country: None (occurrence: None)
  Receive Date: 20110825
  Receipt Date: 20110526
  Transmission Date: 20111222
  Serious: No
  Sender: FDA-Public Use
  Company Number: 329158

PATIENT
  Age: 47 Year
  Sex: Female
  Weight: 68 kg

DRUGS (5)
  1. VICTOZA [Suspect]
     Indication: CENTRAL OBESITY
     Dosage: 1.2 MG, QD; 0.6 MG
     Dates: start: 20110301, end: 20110524
  2. VICTOZA [Suspect]
     Indication: TYPE 2 DIABETES MELLITUS
     Dosage: 1.2 MG, QD; 0.6 MG
     Dates: start: 20110301, end: 20110524
  3. VICTOZA [Suspect]
     Indication: CENTRAL OBESITY
     Dosage: 1.2 MG, QD; 0.6 MG
     Dates: start: 20110120, end: 20110301
  4. VICTOZA [Suspect]
     Indication: TYPE 2 DIABETES MELLITUS
     Dosage: 1.2 MG, QD; 0.6 MG
     Dates: start: 20110120, end: 20110301
  5. PHAGE (METFORMIN HYDROCHLORIDE) [Concomitant]

REACTIONS (4)
  - NAUSEA [None]
  - VOMITING [None]
  - LIPASE INCREASED [None]
  - DIARRHOEA [None]
